FAERS Safety Report 20061255 (Version 3)
Quarter: 2022Q1

REPORT INFORMATION
  Report Type: Report from Study
  Country: US (occurrence: None)
  Receive Date: 20211112
  Receipt Date: 20220114
  Transmission Date: 20220423
  Serious: Yes (Other)
  Sender: FDA-Public Use
  Company Number: US-ROCHE-2836848

PATIENT
  Age: 74 Year
  Sex: Female
  Weight: 70 kg

DRUGS (26)
  1. RANIBIZUMAB [Suspect]
     Active Substance: RANIBIZUMAB
     Indication: Neovascular age-related macular degeneration
     Dosage: DOSE OF STUDY DRUG FIRST ADMINISTERED IS 100 MG/ML, DOSE LAST STUDY DRUG ADMIN PRIOR AE AND SAE IS 1
     Route: 050
     Dates: start: 20201008
  2. RANIBIZUMAB [Suspect]
     Active Substance: RANIBIZUMAB
  3. RANIBIZUMAB [Suspect]
     Active Substance: RANIBIZUMAB
  4. RANIBIZUMAB [Suspect]
     Active Substance: RANIBIZUMAB
  5. RANIBIZUMAB [Suspect]
     Active Substance: RANIBIZUMAB
  6. RANIBIZUMAB [Suspect]
     Active Substance: RANIBIZUMAB
  7. RANIBIZUMAB [Concomitant]
     Active Substance: RANIBIZUMAB
     Indication: Neovascular age-related macular degeneration
     Dosage: DOSE OF STUDY DRUG FIRST ADMINISTERED IS 10 MG/ML, DOSE LAST STUDY DRUG ADMIN PRIOR AE AND SAE IS 10
     Route: 050
     Dates: start: 20201105
  8. CARBAMAZEPINE [Concomitant]
     Active Substance: CARBAMAZEPINE
     Indication: Trigeminal neuralgia
     Dates: start: 20181203
  9. BACLOFEN [Concomitant]
     Active Substance: BACLOFEN
     Indication: Trigeminal neuralgia
     Dates: start: 2015
  10. MONTELUKAST [Concomitant]
     Active Substance: MONTELUKAST SODIUM
     Indication: Seasonal allergy
     Dates: start: 2016
  11. MINERALS\VITAMINS [Concomitant]
     Active Substance: MINERALS\VITAMINS
     Dates: start: 20150315
  12. FOLIC ACID [Concomitant]
     Active Substance: FOLIC ACID
     Dates: start: 2015
  13. VITAMIN D3 [Concomitant]
     Active Substance: CHOLECALCIFEROL
     Dates: start: 2015
  14. VITAMIN C [Concomitant]
     Active Substance: ASCORBIC ACID
     Dates: start: 2015
  15. CRANBERRY [Concomitant]
     Active Substance: CRANBERRY
     Dates: start: 2015
  16. CANNABIDIOL [Concomitant]
     Active Substance: CANNABIDIOL
     Indication: Trigeminal neuralgia
     Dates: start: 20181203
  17. GLUCOSAMINE CHONDROITIN MSM [Concomitant]
     Dates: start: 2015
  18. HERBALS\TURMERIC [Concomitant]
     Active Substance: HERBALS\TURMERIC
     Route: 048
     Dates: start: 2015
  19. REFRESH OPTIVE [Concomitant]
     Active Substance: CARBOXYMETHYLCELLULOSE SODIUM\GLYCERIN
     Indication: Dry eye
     Route: 047
     Dates: start: 2001
  20. REFRESH OPTIVE [Concomitant]
     Active Substance: CARBOXYMETHYLCELLULOSE SODIUM\GLYCERIN
     Route: 047
     Dates: start: 2011
  21. TYLENOL [Concomitant]
     Active Substance: ACETAMINOPHEN
     Indication: Conjunctival bleb
     Dates: start: 20210908
  22. PREDNISOLONE [Concomitant]
     Active Substance: PREDNISOLONE
     Indication: Conjunctival bleb
     Dates: start: 20210909, end: 20210929
  23. AMOXICILLIN [Concomitant]
     Active Substance: AMOXICILLIN
     Indication: Ear infection
     Dates: start: 20210902
  24. TOBRAMYCIN [Concomitant]
     Active Substance: TOBRAMYCIN
     Route: 047
     Dates: start: 20210907, end: 20211108
  25. TOBRAMYCIN [Concomitant]
     Active Substance: TOBRAMYCIN
     Dates: start: 20211108, end: 20211111
  26. HYDROCODONE [Concomitant]
     Active Substance: HYDROCODONE
     Indication: Ankle operation
     Dates: start: 20211228

REACTIONS (1)
  - Conjunctival bleb [Recovered/Resolved]

NARRATIVE: CASE EVENT DATE: 20210524
